FAERS Safety Report 7455556-1 (Version None)
Quarter: 2011Q2

REPORT INFORMATION
  Report Type: 
  Country: None (occurrence: None)
  Receive Date: 20110503
  Receipt Date: 20110426
  Transmission Date: 20111010
  Serious: Yes (Other)
  Sender: FDA-Public Use
  Company Number: US-BAYER-2011-012623

PATIENT
  Age: 22 Year
  Sex: Female

DRUGS (2)
  1. MIRENA [Suspect]
     Indication: CONTRACEPTION
     Dosage: DAILY DOSE 20 ?G/D
     Route: 015
     Dates: start: 20100401, end: 20100501
  2. MIRENA [Suspect]
     Dosage: DAILY DOSE 20 ?G/D
     Route: 015
     Dates: start: 20100501, end: 20110101

REACTIONS (3)
  - MUSCLE SPASMS [None]
  - DEVICE DISLOCATION [None]
  - DEVICE EXPULSION [None]
